FAERS Safety Report 14081341 (Version 2)
Quarter: 2017Q4

REPORT INFORMATION
  Report Type: Report from Study
  Country: US (occurrence: US)
  Receive Date: 20171012
  Receipt Date: 20171107
  Transmission Date: 20180321
  Serious: Yes (Death, Hospitalization)
  Sender: FDA-Public Use
  Company Number: US-ACTELION-A-US2017-160888

PATIENT
  Age: 71 Year
  Sex: Female
  Weight: 51.7 kg

DRUGS (10)
  1. MIRAPEX [Concomitant]
     Active Substance: PRAMIPEXOLE DIHYDROCHLORIDE
  2. ELIQUIS [Concomitant]
     Active Substance: APIXABAN
  3. REVATIO [Concomitant]
     Active Substance: SILDENAFIL CITRATE
  4. OPSUMIT [Suspect]
     Active Substance: MACITENTAN
     Indication: PULMONARY ARTERIAL HYPERTENSION
     Dosage: 10 MG, QD
     Route: 048
     Dates: start: 201604, end: 20171022
  5. NIFEDIPINE. [Concomitant]
     Active Substance: NIFEDIPINE
  6. LEVOTHYROXINE. [Concomitant]
     Active Substance: LEVOTHYROXINE
  7. VELETRI [Suspect]
     Active Substance: EPOPROSTENOL
     Indication: PULMONARY ARTERIAL HYPERTENSION
     Dosage: 14 NG/KG, PER MIN
     Route: 042
     Dates: start: 20171019, end: 20171023
  8. UPTRAVI [Suspect]
     Active Substance: SELEXIPAG
     Indication: PULMONARY ARTERIAL HYPERTENSION
     Dosage: 1600 MCG, BID
     Route: 048
     Dates: start: 201604, end: 20171020
  9. KLOR-CON [Concomitant]
     Active Substance: POTASSIUM CHLORIDE
  10. BUMETANIDE. [Concomitant]
     Active Substance: BUMETANIDE

REACTIONS (11)
  - Diarrhoea infectious [Unknown]
  - Leukocytosis [Unknown]
  - Mental status changes [Unknown]
  - Atrial fibrillation [Unknown]
  - Disease progression [Fatal]
  - Arrhythmia [Unknown]
  - Hypercapnia [Unknown]
  - Pulmonary hypertension [Fatal]
  - Clostridium difficile infection [Unknown]
  - Fluid overload [Unknown]
  - Tachycardia [Unknown]

NARRATIVE: CASE EVENT DATE: 20171020
